FAERS Safety Report 7979236-9 (Version None)
Quarter: 2011Q4

REPORT INFORMATION
  Report Type: 
  Country: None (occurrence: None)
  Receive Date: 20111214
  Receipt Date: 20111206
  Transmission Date: 20120403
  Serious: Yes (Death, Hospitalization)
  Sender: FDA-Public Use
  Company Number: PL-TEVA-298125ISR

PATIENT
  Sex: Male

DRUGS (6)
  1. DICLOFENAC SODIUM [Concomitant]
     Dates: start: 20070928
  2. OMEPRAZOLE [Concomitant]
     Dates: start: 20080922
  3. ABATACEPT [Suspect]
     Dosage: 17.8571 MILLIGRAM;
     Route: 058
     Dates: start: 20090225
  4. FOLIC ACID [Concomitant]
     Dates: start: 20050304
  5. ALENDRONATE SODIUM [Concomitant]
     Dates: start: 19970707, end: 20110718
  6. METHOTREXATE [Suspect]
     Indication: RHEUMATOID ARTHRITIS
     Dates: start: 20041126, end: 20110718

REACTIONS (1)
  - BLADDER CANCER [None]
